FAERS Safety Report 9342772 (Version 1)
Quarter: 2013Q2

REPORT INFORMATION
  Report Type: Spontaneous
  Country: US (occurrence: US)
  Receive Date: 20130611
  Receipt Date: 20130611
  Transmission Date: 20140414
  Serious: Yes (Hospitalization)
  Sender: FDA-Public Use
  Company Number: US-GLAXOSMITHKLINE-A0797767A

PATIENT
  Age: 85 Year
  Sex: Female

DRUGS (1)
  1. AVANDIA [Suspect]
     Indication: DIABETES MELLITUS
     Route: 048
     Dates: end: 20071031

REACTIONS (6)
  - Cardiac failure congestive [Unknown]
  - Cerebrovascular accident [Unknown]
  - Multiple fractures [Unknown]
  - Anaemia [Unknown]
  - Macular oedema [Unknown]
  - Myocardial infarction [Unknown]
